FAERS Safety Report 7967671-4 (Version None)
Quarter: 2011Q4

REPORT INFORMATION
  Report Type: 
  Country: None (occurrence: None)
  Receive Date: 20111122
  Receipt Date: 20110711
  Transmission Date: 20120403
  Serious: No
  Sender: FDA-Public Use
  Company Number: PHHY2011US62094

PATIENT
  Age: 37 Year
  Sex: Female
  Weight: 64.4 kg

DRUGS (5)
  1. CYCLOBENZAPRINE [Concomitant]
  2. LISINOPRIL [Concomitant]
  3. ADDERALL 10 [Concomitant]
  4. GILENYA [Suspect]
     Indication: MULTIPLE SCLEROSIS
     Dosage: 0.5 MG, QD, ORAL
     Route: 048
     Dates: start: 20110707
  5. EXCEDRIN (MIGRAINE) [Concomitant]

REACTIONS (3)
  - SALIVARY HYPERSECRETION [None]
  - NAUSEA [None]
  - HEADACHE [None]
